FAERS Safety Report 25771984 (Version 1)
Quarter: 2025Q3

REPORT INFORMATION
  Report Type: Spontaneous
  Country: US (occurrence: US)
  Receive Date: 20250908
  Receipt Date: 20250908
  Transmission Date: 20251021
  Serious: Yes (Death, Other)
  Sender: SANOFI AVENTIS
  Company Number: US-SA-2025SA265956

PATIENT
  Age: 70 Year
  Sex: Female

DRUGS (1)
  1. TOUJEO [Suspect]
     Active Substance: INSULIN GLARGINE
     Indication: Blood glucose increased
     Dosage: 36 IU, QD
     Route: 058
     Dates: end: 20250715

REACTIONS (1)
  - Death [Fatal]

NARRATIVE: CASE EVENT DATE: 20250715
